FAERS Safety Report 7509623-4 (Version None)
Quarter: 2011Q2

REPORT INFORMATION
  Report Type: 
  Country: None (occurrence: None)
  Receive Date: 20110527
  Receipt Date: 20110524
  Transmission Date: 20111010
  Serious: Yes (Hospitalization)
  Sender: FDA-Public Use
  Company Number: US-GILEAD-2011-0037556

PATIENT
  Sex: Female

DRUGS (5)
  1. LETAIRIS [Suspect]
     Indication: CONNECTIVE TISSUE DISORDER
  2. LETAIRIS [Suspect]
     Indication: AUTOIMMUNE DISORDER
  3. LETAIRIS [Suspect]
     Indication: PULMONARY HYPERTENSION
     Route: 048
     Dates: start: 20101129, end: 20110301
  4. ADCIRCA [Concomitant]
  5. CELLCEPT [Concomitant]

REACTIONS (1)
  - VASCULITIS [None]
